FAERS Safety Report 25723225 (Version 1)
Quarter: 2025Q3

REPORT INFORMATION
  Report Type: Spontaneous
  Country: US (occurrence: US)
  Receive Date: 20250825
  Receipt Date: 20250825
  Transmission Date: 20251020
  Serious: Yes (Other)
  Sender: NOVO NORDISK
  Company Number: US-NOVOPROD-1503098

PATIENT
  Age: 54 Year
  Sex: Male
  Weight: 100.6 kg

DRUGS (1)
  1. TRESIBA [Suspect]
     Active Substance: INSULIN DEGLUDEC
     Indication: Product used for unknown indication
     Route: 058
     Dates: start: 20150101

REACTIONS (1)
  - Coronary artery occlusion [Unknown]

NARRATIVE: CASE EVENT DATE: 20150101
